FAERS Safety Report 9473375 (Version 1)
Quarter: 2013Q3

REPORT INFORMATION
  Report Type: Spontaneous
  Country: US (occurrence: US)
  Receive Date: 20130823
  Receipt Date: 20130823
  Transmission Date: 20140515
  Serious: No
  Sender: FDA-Public Use
  Company Number: US-BRISTOL-MYERS SQUIBB COMPANY-18935783

PATIENT
  Age: 45 Year
  Sex: Female
  Weight: 71.2 kg

DRUGS (2)
  1. SPRYCEL [Suspect]
     Route: 048
  2. ATIVAN [Concomitant]

REACTIONS (1)
  - Fatigue [Unknown]
